FAERS Safety Report 9239792 (Version 2)
Quarter: 2013Q2

REPORT INFORMATION
  Report Type: Spontaneous
  Country: IT (occurrence: IT)
  Receive Date: 20130418
  Receipt Date: 20130604
  Transmission Date: 20140414
  Serious: Yes (Hospitalization)
  Sender: FDA-Public Use
  Company Number: IT-PFIZER INC-2013121481

PATIENT
  Age: 87 Year
  Sex: Male

DRUGS (9)
  1. SOLU-MEDROL [Suspect]
     Dosage: UNK
     Dates: start: 20130329, end: 20130329
  2. COUMADINE [Suspect]
     Indication: ATRIAL FIBRILLATION
     Dosage: 16.25 MG, WEEKLY
     Route: 048
     Dates: start: 20010608, end: 20130401
  3. ISOSORBIDE MONONITRATE [Concomitant]
     Dosage: UNK
  4. DILATREND [Concomitant]
     Route: 048
  5. CARDIOASPIRIN [Concomitant]
     Route: 048
  6. LASIX [Concomitant]
     Route: 048
  7. ALLOPURINOL [Concomitant]
     Route: 048
  8. ROCALTROL [Concomitant]
     Route: 048
  9. SPIRIVA [Concomitant]
     Dosage: UNK

REACTIONS (4)
  - Off label use [Recovering/Resolving]
  - Anaemia [Recovering/Resolving]
  - Conjunctival haemorrhage [Recovering/Resolving]
  - Haematoma [Recovering/Resolving]
